FAERS Safety Report 7415714-9 (Version None)
Quarter: 2011Q2

REPORT INFORMATION
  Report Type: 
  Country: None (occurrence: None)
  Receive Date: 20110414
  Receipt Date: 20110404
  Transmission Date: 20111010
  Serious: Yes (Hospitalization, Other)
  Sender: FDA-Public Use
  Company Number: US-BAXTER-2011BH008952

PATIENT
  Age: 70 Year
  Sex: Female

DRUGS (19)
  1. STUDY DRUG [Suspect]
     Indication: MULTIPLE MYELOMA
     Route: 048
     Dates: start: 20101018, end: 20101109
  2. OXYCODONE [Concomitant]
     Indication: PRODUCT USED FOR UNKNOWN INDICATION
     Route: 065
     Dates: start: 20101025
  3. AZITHROMYCIN [Concomitant]
     Indication: PRODUCT USED FOR UNKNOWN INDICATION
     Route: 065
     Dates: start: 20101124, end: 20101126
  4. CYCLOPHOSPHAMIDE [Suspect]
     Indication: MULTIPLE MYELOMA
     Route: 042
     Dates: start: 20101123, end: 20101126
  5. DEXAMETHASONE [Suspect]
     Indication: MULTIPLE MYELOMA
     Route: 042
     Dates: start: 20101123, end: 20101126
  6. FLUCONAZOLE [Concomitant]
     Indication: PRODUCT USED FOR UNKNOWN INDICATION
     Route: 065
     Dates: start: 20100108
  7. PROCHLORPERAZINE MALEATE [Concomitant]
     Indication: PRODUCT USED FOR UNKNOWN INDICATION
     Route: 065
     Dates: start: 20100108
  8. BICITRA [Concomitant]
     Indication: PRODUCT USED FOR UNKNOWN INDICATION
     Route: 065
     Dates: start: 20101122, end: 20101130
  9. BORTEZOMIB [Suspect]
     Indication: MULTIPLE MYELOMA
     Route: 042
     Dates: start: 20101025, end: 20101104
  10. CISPLATIN [Suspect]
     Indication: MULTIPLE MYELOMA
     Route: 042
     Dates: start: 20101123, end: 20101126
  11. LIDOCAINE [Concomitant]
     Indication: PRODUCT USED FOR UNKNOWN INDICATION
     Route: 065
     Dates: start: 20101018
  12. DEXAMETHASONE [Suspect]
     Route: 048
     Dates: start: 20101025, end: 20101104
  13. LEVAQUIN [Concomitant]
     Indication: PRODUCT USED FOR UNKNOWN INDICATION
     Route: 065
     Dates: start: 20101117, end: 20101122
  14. DARBEPOETIN ALFA [Concomitant]
     Indication: PRODUCT USED FOR UNKNOWN INDICATION
     Route: 065
     Dates: start: 20100108
  15. ZOLEDRONIC ACID [Concomitant]
     Indication: PRODUCT USED FOR UNKNOWN INDICATION
     Route: 065
     Dates: start: 20090101
  16. ACYCLOVIR [Concomitant]
     Indication: PRODUCT USED FOR UNKNOWN INDICATION
     Route: 065
     Dates: start: 20100108
  17. FAMOTIDINE [Concomitant]
     Indication: PRODUCT USED FOR UNKNOWN INDICATION
     Route: 065
     Dates: start: 20100108
  18. ETOPOSIDE [Suspect]
     Indication: MULTIPLE MYELOMA
     Route: 042
     Dates: start: 20101123, end: 20101126
  19. TYLENOL W/ CODEINE NO. 3 [Concomitant]
     Indication: PRODUCT USED FOR UNKNOWN INDICATION
     Route: 065
     Dates: start: 20101018, end: 20101130

REACTIONS (2)
  - ASTHENIA [None]
  - MENTAL STATUS CHANGES [None]
